APPROVED DRUG PRODUCT: ALPRAZOLAM
Active Ingredient: ALPRAZOLAM
Strength: 2MG
Dosage Form/Route: TABLET;ORAL
Application: A203346 | Product #004 | TE Code: AB
Applicant: AUROBINDO PHARMA LTD
Approved: Jul 31, 2015 | RLD: No | RS: No | Type: RX